FAERS Safety Report 24239506 (Version 2)
Quarter: 2025Q1

REPORT INFORMATION
  Report Type: Spontaneous
  Country: US (occurrence: US)
  Receive Date: 20240822
  Receipt Date: 20250227
  Transmission Date: 20250408
  Serious: No
  Sender: AVADEL CNS PHARMACEUTICALS, LLC
  Company Number: US-AVADEL CNS PHARMACEUTICALS, LLC-2024AVA01095

PATIENT

DRUGS (2)
  1. LUMRYZ [Suspect]
     Active Substance: SODIUM OXYBATE
     Indication: Narcolepsy
     Dosage: 4.5 G, ONCE NIGHTLY
     Dates: start: 20240627
  2. LUMRYZ [Suspect]
     Active Substance: SODIUM OXYBATE
     Indication: Cataplexy

REACTIONS (18)
  - Neuralgia [Recovering/Resolving]
  - Coordination abnormal [Recovered/Resolved]
  - Burning sensation [Recovering/Resolving]
  - Initial insomnia [Recovered/Resolved]
  - Middle insomnia [Recovered/Resolved]
  - Visual impairment [Unknown]
  - Inappropriate affect [Recovered/Resolved]
  - Sensitive skin [Recovered/Resolved]
  - Screaming [Recovered/Resolved]
  - Loss of dreaming [Unknown]
  - Somnolence [Recovered/Resolved]
  - Disorientation [Recovered/Resolved]
  - Headache [Not Recovered/Not Resolved]
  - Decreased appetite [Not Recovered/Not Resolved]
  - Arthralgia [Not Recovered/Not Resolved]
  - Panic attack [Not Recovered/Not Resolved]
  - Memory impairment [Not Recovered/Not Resolved]
  - Unevaluable event [Unknown]

NARRATIVE: CASE EVENT DATE: 20240101
